FAERS Safety Report 21637344 (Version 3)
Quarter: 2022Q4

REPORT INFORMATION
  Report Type: Spontaneous
  Country: US (occurrence: US)
  Receive Date: 20221124
  Receipt Date: 20221228
  Transmission Date: 20230112
  Serious: No
  Sender: FDA-Public Use
  Company Number: US-PFIZER INC-202201318523

PATIENT
  Age: 15 Year
  Sex: Male
  Weight: 44.45 kg

DRUGS (1)
  1. GENOTROPIN [Suspect]
     Active Substance: SOMATROPIN
     Indication: Glycogen storage disease type I
     Dosage: 3.0 MG, 1X/DAY (EVERY NIGHT)

REACTIONS (2)
  - Expired device used [Unknown]
  - Device information output issue [Unknown]

NARRATIVE: CASE EVENT DATE: 20221120
